FAERS Safety Report 11983355 (Version 1)
Quarter: 2016Q1

REPORT INFORMATION
  Report Type: Spontaneous
  Country: CA (occurrence: CA)
  Receive Date: 20160201
  Receipt Date: 20160201
  Transmission Date: 20160526
  Serious: Yes (Other)
  Sender: FDA-Public Use
  Company Number: CA-TEVA-629239ACC

PATIENT
  Sex: Male

DRUGS (1)
  1. FENTANYL. [Suspect]
     Active Substance: FENTANYL
     Indication: PAIN
     Route: 061

REACTIONS (9)
  - Glassy eyes [Recovered/Resolved]
  - Moaning [Recovered/Resolved]
  - Pain [Recovered/Resolved]
  - Euphoric mood [Recovered/Resolved]
  - Nervousness [Recovered/Resolved]
  - Crying [Recovered/Resolved]
  - Speech disorder [Recovered/Resolved]
  - Feeling drunk [Recovered/Resolved]
  - Irritability [Recovered/Resolved]
